FAERS Safety Report 26217284 (Version 1)
Quarter: 2025Q4

REPORT INFORMATION
  Report Type: Spontaneous
  Country: US (occurrence: US)
  Receive Date: 20251231
  Receipt Date: 20251231
  Transmission Date: 20260118
  Serious: No
  Sender: Kenvue
  Company Number: US-KENVUE-20251203508

PATIENT

DRUGS (11)
  1. ROGAINE [Suspect]
     Active Substance: MINOXIDIL
     Indication: Product used for unknown indication
     Route: 065
  2. anua global face oil [Concomitant]
     Indication: Product used for unknown indication
     Route: 065
  3. face wash unspecified [Concomitant]
     Indication: Product used for unknown indication
     Route: 065
  4. toner medicube [Concomitant]
     Indication: Product used for unknown indication
     Route: 065
  5. medicube booster pro [Concomitant]
     Indication: Product used for unknown indication
     Route: 065
  6. beekman1802 milkshake [Concomitant]
     Indication: Product used for unknown indication
     Route: 065
  7. mixsoon hyaluronic acid for lips [Concomitant]
     Indication: Product used for unknown indication
     Route: 065
  8. youthtothepeople retinal + niacinamide [Concomitant]
     Indication: Product used for unknown indication
     Route: 065
  9. oneskin.co topical face treatment [Concomitant]
     Indication: Product used for unknown indication
     Route: 065
  10. grandecosmetics lash serum [Concomitant]
     Indication: Product used for unknown indication
     Route: 065
  11. medicube global exfoliation pads [Concomitant]
     Indication: Product used for unknown indication
     Route: 065

REACTIONS (2)
  - Product administered at inappropriate site [Unknown]
  - Product use in unapproved indication [Unknown]
